FAERS Safety Report 7601617-3 (Version None)
Quarter: 2011Q3

REPORT INFORMATION
  Report Type: 
  Country: None (occurrence: None)
  Receive Date: 20110711
  Receipt Date: 20110701
  Transmission Date: 20111222
  Serious: Yes (Other)
  Sender: FDA-Public Use
  Company Number: PHHY2011NL48658

PATIENT
  Sex: Female

DRUGS (4)
  1. MICONAZOLE [Concomitant]
  2. LAMISIL [Suspect]
     Dosage: 250 MG/DAY
     Route: 048
     Dates: start: 19920701
  3. UREA [Concomitant]
     Dosage: 40 %, UNK
  4. LAMISIL [Suspect]
     Indication: ONYCHOMYCOSIS
     Dosage: 1 DF, QD
     Dates: end: 19920901

REACTIONS (2)
  - HYPOACUSIS [None]
  - TINNITUS [None]
